FAERS Safety Report 23698296 (Version 1)
Quarter: 2024Q2

REPORT INFORMATION
  Report Type: Spontaneous
  Country: US (occurrence: None)
  Receive Date: 20240401
  Receipt Date: 20240401
  Transmission Date: 20240715
  Serious: No
  Sender: FDA-Public Use
  Company Number: None

PATIENT

DRUGS (2)
  1. ATROPINE SULFATE [Suspect]
     Active Substance: ATROPINE SULFATE
     Route: 058
  2. ONDANSETRON [Suspect]
     Active Substance: ONDANSETRON

REACTIONS (2)
  - Product label confusion [None]
  - Product packaging confusion [None]
